FAERS Safety Report 16617456 (Version 1)
Quarter: 2019Q3

REPORT INFORMATION
  Report Type: Spontaneous
  Country: ES (occurrence: ES)
  Receive Date: 20190723
  Receipt Date: 20190723
  Transmission Date: 20191004
  Serious: Yes (Life-Threatening, Hospitalization)
  Sender: FDA-Public Use
  Company Number: ES-MYLANLABS-2019M1068134

PATIENT
  Age: 50 Year
  Sex: Male

DRUGS (5)
  1. AMOXICILINA + ACIDO CLAVULANICO [Suspect]
     Active Substance: AMOXICILLIN\CLAVULANIC ACID
     Indication: PNEUMONIA
     Dosage: 1 DOSAGE FORM, Q8H
     Route: 042
     Dates: start: 20190115, end: 20190120
  2. TAMIFLU [Suspect]
     Active Substance: OSELTAMIVIR PHOSPHATE
     Indication: INFLUENZA A VIRUS TEST POSITIVE
     Dosage: 75 MILLIGRAM, QD
     Route: 048
     Dates: start: 20190117, end: 20190120
  3. LINEZOLID. [Suspect]
     Active Substance: LINEZOLID
     Indication: PNEUMONIA
     Dosage: 600 MILLIGRAM, BID(12H)
     Route: 042
     Dates: start: 20190116, end: 20190121
  4. AZITROMICINA [Suspect]
     Active Substance: AZITHROMYCIN DIHYDRATE
     Indication: PNEUMONIA
     Dosage: 500 MILLIGRAM, QD
     Route: 042
     Dates: start: 20190116, end: 20190120
  5. VORICONAZOL [Suspect]
     Active Substance: VORICONAZOLE
     Indication: PNEUMONIA
     Dosage: 500 MILLIGRAM, QD
     Route: 048
     Dates: start: 20190117, end: 20190121

REACTIONS (2)
  - Hepatitis cholestatic [Recovering/Resolving]
  - Coagulopathy [Recovered/Resolved]

NARRATIVE: CASE EVENT DATE: 20190120
